FAERS Safety Report 5811143-X (Version None)
Quarter: 2008Q3

REPORT INFORMATION
  Report Type: 
  Country: None (occurrence: None)
  Receive Date: 20080716
  Receipt Date: 20080707
  Transmission Date: 20090109
  Serious: Yes (Other)
  Sender: FDA-Public Use
  Company Number: US-JNJFOC-20080407615

PATIENT
  Sex: Female
  Weight: 69.4 kg

DRUGS (2)
  1. REMICADE [Suspect]
     Route: 042
  2. REMICADE [Suspect]
     Indication: PSORIATIC ARTHROPATHY
     Dosage: 9 INFUSIONS ON UNKNOWN DATES
     Route: 042

REACTIONS (4)
  - ABORTION SPONTANEOUS [None]
  - ACUTE SINUSITIS [None]
  - BACTERIAL DISEASE CARRIER [None]
  - DRUG EXPOSURE DURING PREGNANCY [None]
